FAERS Safety Report 7323337-5 (Version None)
Quarter: 2011Q1

REPORT INFORMATION
  Report Type: 
  Country: None (occurrence: None)
  Receive Date: 20110301
  Receipt Date: 20110221
  Transmission Date: 20110831
  Serious: Yes (Other)
  Sender: FDA-Public Use
  Company Number: DE-MILLENNIUM PHARMACEUTICALS, INC.-2011-00522

PATIENT

DRUGS (2)
  1. VELCADE [Suspect]
     Indication: MULTIPLE MYELOMA
     Dosage: 2.7 MG, UNK
     Route: 065
     Dates: start: 20100126, end: 20100126
  2. VELCADE [Suspect]
     Dosage: 2.7 MG, UNK
     Dates: start: 20100126, end: 20100126

REACTIONS (2)
  - LEUKOPENIA [None]
  - ACCIDENTAL OVERDOSE [None]
